FAERS Safety Report 22140518 (Version 1)
Quarter: 2023Q1

REPORT INFORMATION
  Report Type: Spontaneous
  Country: CN (occurrence: CN)
  Receive Date: 20230327
  Receipt Date: 20230327
  Transmission Date: 20230418
  Serious: Yes (Other)
  Sender: FDA-Public Use
  Company Number: CN-MLMSERVICE-20230313-4162411-1

PATIENT
  Age: 71 Year
  Sex: Female

DRUGS (4)
  1. GEMCITABINE [Suspect]
     Active Substance: GEMCITABINE
     Indication: Metastases to central nervous system
     Dosage: D1
     Dates: start: 20200319, end: 20200327
  2. HERCEPTIN [Suspect]
     Active Substance: TRASTUZUMAB
     Indication: Metastases to central nervous system
     Dosage: D1
     Dates: start: 20200319, end: 20200327
  3. APATINIB [Suspect]
     Active Substance: APATINIB
     Indication: Metastases to central nervous system
     Dosage: QD
     Dates: start: 20200319, end: 20200327
  4. PYROTINIB [Suspect]
     Active Substance: PYROTINIB
     Indication: Metastases to central nervous system
     Dosage: QD
     Dates: start: 20200319, end: 20200327

REACTIONS (2)
  - Leukopenia [Recovered/Resolved]
  - Thrombocytopenia [Recovered/Resolved]

NARRATIVE: CASE EVENT DATE: 20200327
